FAERS Safety Report 9778267 (Version 2)
Quarter: 2014Q1

REPORT INFORMATION
  Report Type: Report from Study
  Country: CA (occurrence: CA)
  Receive Date: 20131223
  Receipt Date: 20140122
  Transmission Date: 20141002
  Serious: Yes (Hospitalization)
  Sender: FDA-Public Use
  Company Number: CA-JNJFOC-20131211338

PATIENT
  Age: 50 Year
  Sex: Female
  Weight: 116.4 kg

DRUGS (9)
  1. SIMPONI [Suspect]
     Indication: RHEUMATOID ARTHRITIS
     Route: 058
     Dates: start: 20120824
  2. SIMPONI [Suspect]
     Indication: RHEUMATOID ARTHRITIS
     Route: 058
     Dates: start: 20131205
  3. PLAQUENIL [Concomitant]
     Indication: RHEUMATOID ARTHRITIS
     Route: 048
  4. NAPROXEN [Concomitant]
     Indication: RHEUMATOID ARTHRITIS
     Route: 048
  5. PANTOPRAZOLE [Concomitant]
     Indication: GASTROINTESTINAL DISORDER THERAPY
     Route: 048
  6. RISEDRONATE [Concomitant]
     Indication: OSTEOPOROSIS
     Route: 048
  7. ELAVIL [Concomitant]
     Indication: RHEUMATOID ARTHRITIS
     Route: 048
  8. CELEXA [Concomitant]
     Indication: DEPRESSED MOOD
     Route: 048
  9. METHOTREXATE [Concomitant]
     Indication: RHEUMATOID ARTHRITIS
     Route: 058

REACTIONS (3)
  - Synovial rupture [Recovering/Resolving]
  - Rheumatoid arthritis [Unknown]
  - Weight decreased [Unknown]
